FAERS Safety Report 8202825-3 (Version None)
Quarter: 2012Q1

REPORT INFORMATION
  Report Type: 
  Country: None (occurrence: None)
  Receive Date: 20120312
  Receipt Date: 20120312
  Transmission Date: 20120608
  Serious: Yes (Other)
  Sender: FDA-Public Use
  Company Number: None

PATIENT
  Age: 83 Year
  Sex: Male
  Weight: 73.481 kg

DRUGS (2)
  1. XARELTO [Suspect]
     Indication: ATRIAL FIBRILLATION
     Route: 048
     Dates: start: 20120306, end: 20120307
  2. XARELTO [Concomitant]
     Dosage: ONE
     Route: 048
     Dates: start: 20120306, end: 20120307

REACTIONS (1)
  - BLOOD URINE ABSENT [None]
